FAERS Safety Report 5605857-4 (Version None)
Quarter: 2008Q1

REPORT INFORMATION
  Report Type: 
  Country: None (occurrence: None)
  Receive Date: 20080129
  Receipt Date: 20080121
  Transmission Date: 20080703
  Serious: Yes (Other)
  Sender: FDA-Public Use
  Company Number: PHNR2008AU00441

PATIENT
  Sex: Male

DRUGS (2)
  1. CLOZARIL [Suspect]
     Indication: SCHIZOPHRENIA
     Dosage: 12.5-500MG DAILY
     Route: 048
     Dates: start: 20050919
  2. CITALOPRAM HYDROBROMIDE [Concomitant]
     Dosage: 20MG

REACTIONS (7)
  - DILATATION VENTRICULAR [None]
  - ECHOCARDIOGRAM ABNORMAL [None]
  - HYPERTENSION [None]
  - TACHYCARDIA [None]
  - TYPE 2 DIABETES MELLITUS [None]
  - VENTRICULAR HYPERTROPHY [None]
  - VENTRICULAR HYPOKINESIA [None]
